FAERS Safety Report 4615271-6 (Version None)
Quarter: 2005Q1

REPORT INFORMATION
  Report Type: 
  Country: None (occurrence: None)
  Receive Date: 20050317
  Receipt Date: 20050302
  Transmission Date: 20050727
  Serious: Yes (Death)
  Sender: FDA-Public Use
  Company Number: 2002133884US

PATIENT
  Age: 53 Year
  Sex: 0

DRUGS (3)
  1. GLYNASE PRESTAB TABLET (GLIBENCLAMIDE) (GLIBENCLAMIDE) [Suspect]
     Indication: ILL-DEFINED DISORDER
  2. THEOPHYLLINE [Suspect]
     Indication: ILL-DEFINED DISORDER
  3. NORTRIPTYLINE HYDROCHLORIDE (NORTRIPTYLINE HYDROCHLORIDE) [Suspect]
     Indication: ILL-DEFINED DISORDER

REACTIONS (1)
  - COMPLETED SUICIDE [None]
